FAERS Safety Report 17261156 (Version 1)
Quarter: 2020Q1

REPORT INFORMATION
  Report Type: Report from Study
  Country: None (occurrence: CA)
  Receive Date: 20200113
  Receipt Date: 20200113
  Transmission Date: 20200409
  Serious: No
  Sender: FDA-Public Use
  Company Number: CA-ABBVIE-19K-028-3007518-00

PATIENT
  Sex: Male
  Weight: 48 kg

DRUGS (1)
  1. HUMIRA [Suspect]
     Active Substance: ADALIMUMAB
     Indication: CROHN^S DISEASE
     Route: 058
     Dates: start: 20181219, end: 201909

REACTIONS (5)
  - Disorientation [Unknown]
  - Osteomyelitis [Recovering/Resolving]
  - Pain in extremity [Unknown]
  - Clostridium difficile infection [Unknown]
  - Headache [Unknown]

NARRATIVE: CASE EVENT DATE: 2019
